FAERS Safety Report 6338127-X (Version None)
Quarter: 2009Q3

REPORT INFORMATION
  Report Type: 
  Country: None (occurrence: None)
  Receive Date: 20090902
  Receipt Date: 20090825
  Transmission Date: 20100115
  Serious: Yes (Other)
  Sender: FDA-Public Use
  Company Number: AU-PFIZER INC-2009259684

PATIENT

DRUGS (1)
  1. LIPITOR [Suspect]

REACTIONS (3)
  - LIVER TRANSPLANT [None]
  - OVERDOSE [None]
  - RENAL FAILURE [None]
